FAERS Safety Report 22896907 (Version 4)
Quarter: 2024Q1

REPORT INFORMATION
  Report Type: Spontaneous
  Country: CA (occurrence: CA)
  Receive Date: 20230902
  Receipt Date: 20240316
  Transmission Date: 20240410
  Serious: Yes (Other)
  Sender: FDA-Public Use
  Company Number: CA-CELLTRION INC.-2023CA012500

PATIENT

DRUGS (13)
  1. INFLECTRA [Suspect]
     Active Substance: INFLIXIMAB-DYYB
     Indication: Crohn^s disease
     Dosage: 5 MG/KG, INDUCTION WEEKS 0, 2, 6 MAINTENANCE Q 8 WEEKS FOR 12 MONTHS (REPEATS: 5)
     Route: 042
     Dates: start: 20230714
  2. INFLECTRA [Suspect]
     Active Substance: INFLIXIMAB-DYYB
     Dosage: 5 MG/KG, INDUCTION WEEKS 0, 2, 6 MAINTENANCE Q 8 WEEKS FOR 12 MONTHS (REPEATS: 5)
     Route: 042
     Dates: start: 20230714
  3. INFLECTRA [Suspect]
     Active Substance: INFLIXIMAB-DYYB
     Dosage: 290 MG, WEEK 6 INDUCTION (AFTER 4 WEEKS)
     Route: 042
     Dates: start: 20230824
  4. INFLECTRA [Suspect]
     Active Substance: INFLIXIMAB-DYYB
     Dosage: 290 MG, EVERY 8 WEEKS
     Route: 042
     Dates: start: 20231019
  5. INFLECTRA [Suspect]
     Active Substance: INFLIXIMAB-DYYB
     Dosage: 5 MG/KG (280 MG), EVERY 6 WEEKS
     Route: 042
     Dates: start: 20240126
  6. INFLECTRA [Suspect]
     Active Substance: INFLIXIMAB-DYYB
     Dosage: 5 MG/KG EVERY 6 WEEK (285 MG 5 WEEKS AND 6 DAYS)
     Route: 042
     Dates: start: 20240307
  7. ACETAMINOPHEN [Concomitant]
     Active Substance: ACETAMINOPHEN
     Indication: Premedication
     Dosage: UNK
     Dates: start: 20240126, end: 20240126
  8. DIMENHYDRINATE [Concomitant]
     Active Substance: DIMENHYDRINATE
     Indication: Premedication
     Dosage: UNK
     Dates: start: 20240126, end: 20240126
  9. DIPHENHYDRAMINE [Concomitant]
     Active Substance: DIPHENHYDRAMINE
     Indication: Premedication
     Dosage: UNK
     Dates: start: 20240126, end: 20240126
  10. HUMIRA [Concomitant]
     Active Substance: ADALIMUMAB
     Dosage: 40 MG, WEEKLY EVERY SUNDAY
     Dates: start: 2014
  11. HYDROCORTISONE [Concomitant]
     Active Substance: HYDROCORTISONE
     Indication: Premedication
     Dosage: UNK
     Dates: start: 20240126, end: 20240126
  12. METHOTREXATE [Concomitant]
     Active Substance: METHOTREXATE
     Dosage: 15 MG, 3 TIMES A WEEK ON WEDNESDAY, FRIDAY AND SUNDAY (PILLS)
     Dates: start: 20230621
  13. MELOXICAM [Concomitant]
     Active Substance: MELOXICAM
     Dosage: 15 MG, AS NEEDED
     Dates: start: 2020

REACTIONS (12)
  - Oxygen saturation decreased [Recovering/Resolving]
  - Anxiety [Recovering/Resolving]
  - Blood pressure increased [Recovering/Resolving]
  - Infection [Recovering/Resolving]
  - COVID-19 [Recovering/Resolving]
  - Uveitis [Recovered/Resolved]
  - Condition aggravated [Recovered/Resolved]
  - Arthralgia [Recovered/Resolved]
  - Aphthous ulcer [Recovered/Resolved]
  - Heart rate increased [Unknown]
  - Off label use [Unknown]
  - Intentional product use issue [Unknown]

NARRATIVE: CASE EVENT DATE: 20230824
